FAERS Safety Report 7384160-9 (Version None)
Quarter: 2011Q1

REPORT INFORMATION
  Report Type: 
  Country: None (occurrence: None)
  Receive Date: 20110330
  Receipt Date: 20110323
  Transmission Date: 20110831
  Serious: Yes (Other)
  Sender: FDA-Public Use
  Company Number: B0705955A

PATIENT
  Sex: Female
  Weight: 50 kg

DRUGS (7)
  1. ARIMIDEX [Concomitant]
     Indication: BREAST CANCER
     Dosage: 1MG PER DAY
     Route: 048
     Dates: start: 20100927, end: 20101206
  2. GASTER D [Concomitant]
     Dosage: 40MG PER DAY
     Route: 048
     Dates: start: 20101025, end: 20101220
  3. AMOXAN [Concomitant]
     Indication: DEPRESSED MOOD
     Dosage: 75MG PER DAY
     Route: 048
     Dates: start: 20101025, end: 20101220
  4. OXYCONTIN [Concomitant]
     Dosage: 80MG PER DAY
     Route: 048
     Dates: start: 20101025, end: 20101220
  5. XELODA [Suspect]
     Dosage: 3000MG PER DAY
     Route: 048
     Dates: start: 20101025, end: 20101220
  6. TYKERB [Suspect]
     Indication: BREAST CANCER
     Dosage: 1250MG PER DAY
     Route: 048
     Dates: start: 20101025, end: 20101220
  7. ETODOLAC [Concomitant]
     Dosage: 200MG PER DAY
     Route: 048
     Dates: start: 20101025, end: 20101220

REACTIONS (2)
  - PALMAR-PLANTAR ERYTHRODYSAESTHESIA SYNDROME [None]
  - GASTROINTESTINAL DISORDER [None]
